FAERS Safety Report 9105419 (Version 1)
Quarter: 2013Q1

REPORT INFORMATION
  Report Type: Spontaneous
  Country: US (occurrence: US)
  Receive Date: 20130220
  Receipt Date: 20130220
  Transmission Date: 20140127
  Serious: No
  Sender: FDA-Public Use
  Company Number: US-PFIZER INC-2013063441

PATIENT
  Age: 84 Year
  Sex: Female
  Weight: 86.17 kg

DRUGS (3)
  1. LYRICA [Suspect]
     Indication: HERPES ZOSTER
     Dosage: UNK
     Route: 048
     Dates: start: 2011
  2. LYRICA [Suspect]
     Dosage: 2 DF, 1X/DAY ,(FOR THREE MONTHS)
     Route: 048
     Dates: start: 201208
  3. LYRICA [Suspect]
     Dosage: 1 DF, 1X/DAY
     Route: 048
     Dates: start: 201302

REACTIONS (4)
  - Intentional drug misuse [Unknown]
  - Dizziness [Recovering/Resolving]
  - Somnolence [Recovering/Resolving]
  - Tremor [Recovering/Resolving]
